FAERS Safety Report 14536215 (Version 2)
Quarter: 2018Q1

REPORT INFORMATION
  Report Type: Spontaneous
  Country: UA (occurrence: UA)
  Receive Date: 20180215
  Receipt Date: 20180227
  Transmission Date: 20180509
  Serious: Yes (Hospitalization, Other)
  Sender: FDA-Public Use
  Company Number: UA-ASTRAZENECA-2018SE18449

PATIENT
  Age: 24092 Day
  Sex: Female
  Weight: 70 kg

DRUGS (4)
  1. DIAFORMIN [Concomitant]
     Active Substance: METFORMIN HYDROCHLORIDE
  2. BRILINTA [Suspect]
     Active Substance: TICAGRELOR
     Indication: ACUTE MYOCARDIAL INFARCTION
     Dosage: 90, UNKNOWN
     Route: 048
     Dates: start: 20180201
  3. DIABETON [Concomitant]
     Active Substance: GLICLAZIDE
  4. BRILINTA [Suspect]
     Active Substance: TICAGRELOR
     Indication: ACUTE CORONARY SYNDROME
     Dosage: 90, UNKNOWN
     Route: 048
     Dates: start: 20180201

REACTIONS (6)
  - Troponin increased [Unknown]
  - Circumstance or information capable of leading to medication error [Unknown]
  - Vascular stent thrombosis [Unknown]
  - Electrocardiogram ST segment elevation [Unknown]
  - Blood pressure increased [Unknown]
  - Pain [Recovering/Resolving]

NARRATIVE: CASE EVENT DATE: 20180205
